FAERS Safety Report 22814778 (Version 6)
Quarter: 2023Q4

REPORT INFORMATION
  Report Type: Report from Study
  Country: US (occurrence: US)
  Receive Date: 20230811
  Receipt Date: 20231227
  Transmission Date: 20240109
  Serious: No
  Sender: FDA-Public Use
  Company Number: US-002147023-NVSC2023US175216

PATIENT

DRUGS (1)
  1. KESIMPTA [Suspect]
     Active Substance: OFATUMUMAB
     Indication: Product used for unknown indication
     Dosage: UNK
     Route: 065
     Dates: start: 20230809

REACTIONS (10)
  - Immediate post-injection reaction [Unknown]
  - Illness [Unknown]
  - Vomiting [Unknown]
  - Pruritus [Unknown]
  - Cold sweat [Unknown]
  - Chills [Unknown]
  - Tremor [Unknown]
  - Injection site rash [Unknown]
  - Pain [Unknown]
  - Pyrexia [Unknown]
